FAERS Safety Report 19425716 (Version 1)
Quarter: 2021Q2

REPORT INFORMATION
  Report Type: Spontaneous
  Country: US (occurrence: US)
  Receive Date: 20210616
  Receipt Date: 20210616
  Transmission Date: 20210717
  Serious: Yes (Other)
  Sender: FDA-Public Use
  Company Number: US-ABBVIE-21K-163-3948535-00

PATIENT
  Sex: Female

DRUGS (1)
  1. SYNTHROID [Suspect]
     Active Substance: LEVOTHYROXINE SODIUM
     Indication: HYPOTHYROIDISM
     Route: 048

REACTIONS (15)
  - Ectopic pregnancy [Unknown]
  - Frustration tolerance decreased [Unknown]
  - Pain [Unknown]
  - Arthralgia [Unknown]
  - Anxiety [Unknown]
  - Anger [Unknown]
  - Illness [Unknown]
  - Thyroid disorder [Unknown]
  - Hair texture abnormal [Unknown]
  - Hormone level abnormal [Unknown]
  - Feeling guilty [Unknown]
  - Abortion spontaneous [Unknown]
  - Maternal exposure during pregnancy [Unknown]
  - Inflammation [Unknown]
  - Red blood cell count increased [Unknown]
